FAERS Safety Report 7932431-7 (Version None)
Quarter: 2011Q4

REPORT INFORMATION
  Report Type: 
  Country: None (occurrence: None)
  Receive Date: 20111122
  Receipt Date: 20111115
  Transmission Date: 20120403
  Serious: Yes (Death, Other)
  Sender: FDA-Public Use
  Company Number: US-BIOGENIDEC-2011BI040715

PATIENT
  Age: 53 Year
  Sex: Female

DRUGS (2)
  1. AVONEX [Suspect]
     Indication: MULTIPLE SCLEROSIS
     Route: 030
     Dates: start: 19980301, end: 20060101
  2. NOVANTRONE [Concomitant]
     Indication: MULTIPLE SCLEROSIS

REACTIONS (4)
  - DEATH [None]
  - BREAST CANCER [None]
  - BREAST CANCER RECURRENT [None]
  - BREAST CANCER FEMALE [None]
